FAERS Safety Report 11308634 (Version 1)
Quarter: 2015Q3

REPORT INFORMATION
  Report Type: Spontaneous
  Country: DE (occurrence: DE)
  Receive Date: 20150724
  Receipt Date: 20150724
  Transmission Date: 20151125
  Serious: Yes (Life-Threatening, Hospitalization)
  Sender: FDA-Public Use
  Company Number: DE-ACTAVIS-2015-15177

PATIENT
  Age: 64 Year
  Sex: Male
  Weight: 125 kg

DRUGS (1)
  1. VINORELBINE [Suspect]
     Active Substance: VINORELBINE\VINORELBINE TARTRATE
     Indication: BRONCHIAL CARCINOMA
     Dosage: 50 MG, DAILY
     Route: 042
     Dates: start: 20150623, end: 20150630

REACTIONS (1)
  - Generalised tonic-clonic seizure [Recovering/Resolving]

NARRATIVE: CASE EVENT DATE: 20150630
